FAERS Safety Report 26208349 (Version 1)
Quarter: 2025Q4

REPORT INFORMATION
  Report Type: Spontaneous
  Country: US (occurrence: None)
  Receive Date: 20251228
  Receipt Date: 20251228
  Transmission Date: 20260118
  Serious: Yes (Other)
  Sender: FDA-CTU
  Company Number: None

PATIENT
  Sex: Female

DRUGS (11)
  1. XOLAIR [Suspect]
     Active Substance: OMALIZUMAB
     Indication: Asthma
     Dates: start: 20251024, end: 202511
  2. COPPER   POW GLUCONAT [Concomitant]
  3. EGRIFTA SOL 2MG [Concomitant]
  4. HORMONE CAP PROTECT [Concomitant]
  5. MORINGA CAP 500MG [Concomitant]
  6. MOUNJARO INJ  15MG/0.5 [Concomitant]
  7. MULTI VITAMI TAB [Concomitant]
  8. MULTIVITAMIN TAB ADULTS [Concomitant]
  9. PEPTIDE LIO 1.5 [Concomitant]
  10. VITAMIN C TAB 500MG [Concomitant]
  11. ZYRTEC ALLGY CAP 10MG [Concomitant]

REACTIONS (2)
  - Asthma [None]
  - Drug hypersensitivity [None]
